FAERS Safety Report 9224682 (Version 1)
Quarter: 2013Q2

REPORT INFORMATION
  Report Type: Spontaneous
  Country: US (occurrence: US)
  Receive Date: 20130411
  Receipt Date: 20130411
  Transmission Date: 20140414
  Serious: No
  Sender: FDA-Public Use
  Company Number: US-BAYER-2013-045708

PATIENT
  Age: 81 Year
  Sex: Female
  Weight: 52 kg

DRUGS (10)
  1. ALEVE TABLET [Suspect]
     Indication: BACK PAIN
     Dosage: 1 DF, PRN
     Route: 048
     Dates: start: 201303
  2. BAYER ASPIRIN REGIMEN ADULT LOW STRENGTH [Concomitant]
     Dosage: 1 DF, QD
     Route: 048
  3. ATENOLOL [Concomitant]
  4. LISINOPRIL [Concomitant]
  5. ATORVASTATIN [Concomitant]
  6. OMEPRAZOLE [Concomitant]
  7. WALGREENS ALLERGY TABLET [Concomitant]
  8. CORICIDIN [Concomitant]
  9. NATURES MADE IRON SUPPLEMENT [Concomitant]
  10. NATURES BOUNTY D3 [Concomitant]

REACTIONS (1)
  - Oral discomfort [Recovered/Resolved]
